FAERS Safety Report 15577746 (Version 1)
Quarter: 2018Q4

REPORT INFORMATION
  Report Type: Spontaneous
  Country: US (occurrence: US)
  Receive Date: 20181102
  Receipt Date: 20181102
  Transmission Date: 20190205
  Serious: No
  Sender: FDA-Public Use
  Company Number: PHEH2018US045270

PATIENT
  Sex: Female

DRUGS (1)
  1. TYKERB [Suspect]
     Active Substance: LAPATINIB DITOSYLATE
     Indication: BRAIN NEOPLASM
     Dosage: 1250 MG, QD
     Route: 048
     Dates: start: 20170215

REACTIONS (2)
  - Product use in unapproved indication [Unknown]
  - Pruritus [Unknown]
